FAERS Safety Report 9528585 (Version 1)
Quarter: 2013Q1

REPORT INFORMATION
  Report Type: Spontaneous
  Country: US (occurrence: None)
  Receive Date: 20130314
  Receipt Date: 20130314
  Transmission Date: 20140127
  Serious: No
  Sender: FDA-Public Use
  Company Number: 1211USA011371

PATIENT
  Sex: Male

DRUGS (3)
  1. PEG-INTRON [Suspect]
     Indication: HEPATITIS C
     Dates: start: 20121009
  2. RIBAVIRIN [Suspect]
     Indication: HEPATITIS C
     Dates: start: 20121009
  3. VICTRELIS [Suspect]
     Indication: HEPATITIS C
     Dates: start: 20121106

REACTIONS (2)
  - Gastrooesophageal reflux disease [None]
  - Nausea [None]
